FAERS Safety Report 7018284-2 (Version None)
Quarter: 2010Q3

REPORT INFORMATION
  Report Type: 
  Country: None (occurrence: None)
  Receive Date: 20100927
  Receipt Date: 20100927
  Transmission Date: 20110219
  Serious: Yes (Other)
  Sender: FDA-Public Use
  Company Number: None

PATIENT
  Age: 57 Year
  Sex: Female
  Weight: 53.978 kg

DRUGS (1)
  1. OXYCONTIN [Suspect]
     Indication: PAIN
     Dosage: 40MG BID PO
     Route: 048
     Dates: start: 20100914, end: 20100925

REACTIONS (4)
  - BREAKTHROUGH PAIN [None]
  - DRUG EFFECT DECREASED [None]
  - HEADACHE [None]
  - NAUSEA [None]
